FAERS Safety Report 23763736 (Version 1)
Quarter: 2024Q2

REPORT INFORMATION
  Report Type: Spontaneous
  Country: US (occurrence: US)
  Receive Date: 20240419
  Receipt Date: 20240419
  Transmission Date: 20240715
  Serious: Yes (Other)
  Sender: FDA-Public Use
  Company Number: US-BEH-2024170535

PATIENT
  Age: 59 Year
  Sex: Female

DRUGS (1)
  1. HIZENTRA [Suspect]
     Active Substance: HUMAN IMMUNOGLOBULIN G
     Indication: Immunodeficiency
     Dosage: UNK, QW
     Route: 065
     Dates: start: 2009

REACTIONS (8)
  - Joint arthroplasty [Unknown]
  - Bacteraemia [Unknown]
  - Staphylococcal infection [Unknown]
  - Central venous catheterisation [Unknown]
  - Catheterisation venous [Unknown]
  - Thrombosis [Unknown]
  - Patient isolation [Unknown]
  - COVID-19 [Unknown]

NARRATIVE: CASE EVENT DATE: 20230213
